FAERS Safety Report 7126958-8 (Version None)
Quarter: 2010Q4

REPORT INFORMATION
  Report Type: 
  Country: None (occurrence: None)
  Receive Date: 20101129
  Receipt Date: 20091210
  Transmission Date: 20110411
  Serious: No
  Sender: FDA-Public Use
  Company Number: US-PFIZER INC-2009288494

PATIENT
  Sex: Male
  Weight: 104.3 kg

DRUGS (2)
  1. VIAGRA [Suspect]
     Indication: ERECTILE DYSFUNCTION
     Dosage: 100 MG, UNK
     Dates: start: 20060101
  2. TRILEPTAL [Concomitant]
     Indication: AFFECTIVE DISORDER
     Dosage: 600 MG, 1X/DAY

REACTIONS (3)
  - CYANOPSIA [None]
  - GASTROOESOPHAGEAL REFLUX DISEASE [None]
  - VISUAL IMPAIRMENT [None]
